FAERS Safety Report 19826855 (Version 1)
Quarter: 2021Q3

REPORT INFORMATION
  Report Type: Spontaneous
  Country: US (occurrence: US)
  Receive Date: 20210913
  Receipt Date: 20210913
  Transmission Date: 20211014
  Serious: Yes (Hospitalization, Other)
  Sender: FDA-Public Use
  Company Number: US-ALEMBIC PHARMACUETICALS LIMITED-2021SCAL000372

PATIENT

DRUGS (8)
  1. LITHIUM CARBONATE. [Suspect]
     Active Substance: LITHIUM CARBONATE
     Dosage: 1200 MILLIGRAM, QD
     Route: 065
  2. LEVETIRACETAM. [Concomitant]
     Active Substance: LEVETIRACETAM
     Indication: SEDATION
     Dosage: UNK
     Route: 065
  3. FLUOXETINE HYDROCHLORIDE. [Suspect]
     Active Substance: FLUOXETINE HYDROCHLORIDE
     Dosage: UNK
     Route: 065
  4. LITHIUM CARBONATE. [Suspect]
     Active Substance: LITHIUM CARBONATE
     Indication: BIPOLAR DISORDER
     Dosage: UNK
     Route: 065
  5. PROPOFOL. [Concomitant]
     Active Substance: PROPOFOL
     Indication: SEDATION
     Dosage: UNK
     Route: 065
  6. FLUOXETINE HYDROCHLORIDE. [Suspect]
     Active Substance: FLUOXETINE HYDROCHLORIDE
     Indication: BIPOLAR DISORDER
     Dosage: 60 MILLIGRAM, QD
     Route: 065
  7. FENTANYL. [Concomitant]
     Active Substance: FENTANYL
     Indication: SEDATION
     Dosage: UNK
     Route: 065
  8. MIDAZOLAM. [Concomitant]
     Active Substance: MIDAZOLAM
     Indication: AGITATION
     Dosage: UNK
     Route: 065

REACTIONS (12)
  - Muscle rigidity [Recovered/Resolved]
  - Respiratory rate increased [Recovered/Resolved]
  - Clonus [Recovered/Resolved]
  - Heart rate increased [Recovered/Resolved]
  - Body temperature increased [Recovered/Resolved]
  - Mydriasis [Recovered/Resolved]
  - Hyperhidrosis [Recovered/Resolved]
  - Agitation [Recovered/Resolved]
  - Oxygen saturation decreased [Recovered/Resolved]
  - Blood pressure systolic increased [Recovered/Resolved]
  - Respiratory failure [Recovered/Resolved]
  - Serotonin syndrome [Recovered/Resolved]
